FAERS Safety Report 4750742-3 (Version None)
Quarter: 2005Q3

REPORT INFORMATION
  Report Type: 
  Country: None (occurrence: None)
  Receive Date: 20050823
  Receipt Date: 20050809
  Transmission Date: 20060218
  Serious: Yes (Hospitalization)
  Sender: FDA-Public Use
  Company Number: GB-MERCK-0508GBR00067

PATIENT
  Sex: Female

DRUGS (2)
  1. FOSAMAX [Suspect]
     Indication: OSTEOPOROSIS
     Route: 048
     Dates: start: 20030101, end: 20031201
  2. ANASTROZOLE [Concomitant]
     Route: 065

REACTIONS (4)
  - CHEST PAIN [None]
  - GASTRIC ULCER [None]
  - OESOPHAGEAL ULCER [None]
  - PHLEBITIS [None]
